FAERS Safety Report 19964010 (Version 1)
Quarter: 2021Q4

REPORT INFORMATION
  Report Type: Spontaneous
  Country: US (occurrence: US)
  Receive Date: 20211018
  Receipt Date: 20211018
  Transmission Date: 20220303
  Serious: No
  Sender: FDA-Public Use
  Company Number: None

PATIENT
  Age: 51 Year
  Sex: Female
  Weight: 94.5 kg

DRUGS (7)
  1. REGEN-COV [Suspect]
     Active Substance: CASIRIVIMAB\IMDEVIMAB
     Indication: COVID-19
  2. ESTROGENS [Concomitant]
     Active Substance: ESTROGENS
  3. PROGESTERONE [Concomitant]
     Active Substance: PROGESTERONE
  4. VITAMIN D NOS [Concomitant]
     Active Substance: VITAMIN D NOS
  5. VITAMINS [Concomitant]
     Active Substance: VITAMINS
  6. QUERCETIN [Concomitant]
     Active Substance: QUERCETIN
  7. ZINC [Concomitant]
     Active Substance: ZINC

REACTIONS (3)
  - Nausea [None]
  - Pulmonary congestion [None]
  - Pyrexia [None]

NARRATIVE: CASE EVENT DATE: 20211017
